FAERS Safety Report 12664977 (Version 3)
Quarter: 2018Q1

REPORT INFORMATION
  Report Type: Spontaneous
  Country: US (occurrence: US)
  Receive Date: 20160818
  Receipt Date: 20180315
  Transmission Date: 20180508
  Serious: Yes (Hospitalization, Disabling)
  Sender: FDA-Public Use
  Company Number: US-ENDO PHARMACEUTICALS INC.-2016-005181

PATIENT
  Age: 66 Year
  Sex: Male
  Weight: 108.84 kg

DRUGS (12)
  1. ANDROGEL [Suspect]
     Active Substance: TESTOSTERONE
     Indication: FATIGUE
     Dosage: 1.62% GEL, APPROXIMATELY TWO PUMPS ONCE DAILY
     Route: 065
     Dates: start: 201307, end: 201307
  2. TESTIM [Suspect]
     Active Substance: TESTOSTERONE
     Indication: ASTHENIA
     Dosage: 1% GEL, APPROXIMATELY ONE TUBE DAILY
     Route: 062
     Dates: start: 201202, end: 201212
  3. TESTIM [Suspect]
     Active Substance: TESTOSTERONE
     Indication: ANDROGEN DEFICIENCY
  4. TESTIM [Suspect]
     Active Substance: TESTOSTERONE
     Indication: FATIGUE
  5. ANDROGEL [Suspect]
     Active Substance: TESTOSTERONE
     Indication: ANDROGEN DEFICIENCY
  6. FLOMAX [Concomitant]
     Active Substance: TAMSULOSIN HYDROCHLORIDE
     Indication: URINARY RETENTION
     Dosage: 0.4 MG, UNK
     Route: 065
     Dates: start: 2013
  7. TESTIM [Suspect]
     Active Substance: TESTOSTERONE
     Indication: ANDROGEN REPLACEMENT THERAPY
     Dosage: 1% GEL, APPROXIMATELY ONE TUBE DAILY
     Route: 062
     Dates: start: 201401, end: 201402
  8. ANDROGEL [Suspect]
     Active Substance: TESTOSTERONE
     Indication: ANDROGEN REPLACEMENT THERAPY
     Dosage: 1% GEL, APPROXIMATELY FOUR PUMPS ONCE DAILY
     Route: 065
     Dates: start: 201308, end: 201312
  9. LOSARTAN POTASSIUM. [Concomitant]
     Active Substance: LOSARTAN POTASSIUM
     Indication: HYPERTENSION
     Dosage: 100 MG, UNKNOWN
     Route: 065
     Dates: start: 2013
  10. ANDROGEL [Suspect]
     Active Substance: TESTOSTERONE
     Indication: ASTHENIA
     Dosage: 1% GEL, APPROXIMATELY FOUR PUMPS ONCE DAILY
     Route: 065
     Dates: start: 201212, end: 201306
  11. CRESTOR [Concomitant]
     Active Substance: ROSUVASTATIN CALCIUM
     Indication: BLOOD CHOLESTEROL INCREASED
     Dosage: UNK UNKNOWN, UNKNOWN
     Route: 065
     Dates: start: 2013
  12. AMITRIPTYLINE HYDROCHLORIDE. [Concomitant]
     Active Substance: AMITRIPTYLINE HYDROCHLORIDE
     Indication: HERPES ZOSTER
     Dosage: 25 MG, UNKNOWN
     Dates: start: 2012

REACTIONS (3)
  - Acute myocardial infarction [Not Recovered/Not Resolved]
  - Arthritis [Unknown]
  - Gout [Unknown]

NARRATIVE: CASE EVENT DATE: 20130811
